FAERS Safety Report 5485637-3 (Version None)
Quarter: 2007Q4

REPORT INFORMATION
  Report Type: 
  Country: None (occurrence: None)
  Receive Date: 20071015
  Receipt Date: 20071005
  Transmission Date: 20080405
  Serious: Yes (Hospitalization)
  Sender: FDA-Public Use
  Company Number: BR-ELI_LILLY_AND_COMPANY-BR200710001893

PATIENT
  Sex: Female
  Weight: 65 kg

DRUGS (8)
  1. FORTEO [Suspect]
     Indication: OSTEOPOROSIS
     Dosage: 20 UG, DAILY (1/D)
     Route: 058
     Dates: start: 20070601
  2. CARDIZEM [Concomitant]
     Indication: ARRHYTHMIA
     Dosage: UNK, UNKNOWN
     Route: 065
  3. ANCORON [Concomitant]
     Indication: HYPERTENSION
     Dosage: UNK, UNKNOWN
     Route: 065
  4. ARADOIS [Concomitant]
     Indication: ARRHYTHMIA
     Dosage: UNK, UNKNOWN
     Route: 065
  5. ARAVA [Concomitant]
     Indication: ARTHRITIS
     Dosage: UNK, UNKNOWN
     Route: 065
  6. VITERGAN MASTER [Concomitant]
     Indication: VITAMIN SUPPLEMENTATION
     Dosage: UNK, UNKNOWN
     Route: 065
  7. LACTULONA [Concomitant]
     Indication: SWELLING
     Dosage: UNK, UNKNOWN
     Route: 065
  8. CALCIUM CARBONATE W/VITAMIN D /00944201/ [Concomitant]
     Indication: BONE DISORDER
     Dosage: UNK, UNKNOWN
     Route: 065

REACTIONS (3)
  - INSOMNIA [None]
  - MEDICAL DEVICE CHANGE [None]
  - PRE-EXISTING CONDITION IMPROVED [None]
